FAERS Safety Report 17426676 (Version 1)
Quarter: 2020Q1

REPORT INFORMATION
  Report Type: Spontaneous
  Country: US (occurrence: US)
  Receive Date: 20200217
  Receipt Date: 20200217
  Transmission Date: 20200409
  Serious: No
  Sender: FDA-Public Use
  Company Number: US-TEVA-2020-US-1186902

PATIENT
  Age: 66 Year
  Sex: Female

DRUGS (1)
  1. CLONAZEPAM-TEVA [Suspect]
     Active Substance: CLONAZEPAM
     Indication: BURNING MOUTH SYNDROME
     Dosage: 3 MILLIGRAM DAILY;
     Route: 048
     Dates: start: 20200131

REACTIONS (5)
  - Regurgitation [Unknown]
  - Wrong technique in product usage process [Unknown]
  - Product substitution issue [Unknown]
  - Product taste abnormal [Unknown]
  - Product physical issue [Unknown]
